FAERS Safety Report 5886255-5 (Version None)
Quarter: 2008Q3

REPORT INFORMATION
  Report Type: 
  Country: None (occurrence: None)
  Receive Date: 20080917
  Receipt Date: 20080908
  Transmission Date: 20090109
  Serious: Yes (Other)
  Sender: FDA-Public Use
  Company Number: US-AVENTIS-200815897US

PATIENT
  Sex: Female

DRUGS (14)
  1. LOVENOX [Suspect]
     Dosage: DOSE: UNK
     Dates: start: 20070101, end: 20070501
  2. LOVENOX [Suspect]
     Dosage: DOSE: UNK
     Dates: start: 20071001
  3. HEPARIN [Suspect]
     Dosage: DOSE: VARIED 5000U QD UP TO 10000U TID
     Dates: start: 20070501, end: 20071001
  4. HEPARIN [Suspect]
     Dosage: DOSE: UNK
     Dates: start: 20071001, end: 20080101
  5. WARFARIN SODIUM [Suspect]
     Dosage: DOSE: UNK
     Dates: start: 20070101
  6. LOPRESSOR [Concomitant]
     Dosage: DOSE: UNK
  7. VICODIN [Concomitant]
     Dosage: DOSE: UNK
  8. PERCOCET [Concomitant]
     Dosage: DOSE: UNK
  9. VIT D [Concomitant]
     Dosage: DOSE: UNK
  10. ASCORBIC ACID [Concomitant]
     Dosage: DOSE: UNK
  11. POTASSIUM SUPPLEMENT [Concomitant]
     Dosage: DOSE: UNK
  12. PREDNISONE TAB [Concomitant]
     Dosage: DOSE: UNK
  13. LABOTOL [Concomitant]
     Dosage: DOSE: UNK
  14. PROMEZALINE [Concomitant]
     Dosage: DOSE: UNK

REACTIONS (4)
  - CHEST PAIN [None]
  - INFLUENZA LIKE ILLNESS [None]
  - PERICARDITIS [None]
  - PYREXIA [None]
